FAERS Safety Report 11518957 (Version 1)
Quarter: 2015Q3

REPORT INFORMATION
  Report Type: Other
  Country: IN (occurrence: IN)
  Receive Date: 20150917
  Receipt Date: 20150917
  Transmission Date: 20151125
  Serious: Yes (Other)
  Sender: FDA-Public Use
  Company Number: IN-CONCORDIA PHARMACEUTICALS INC.-CO-PL-IN-2015-155

PATIENT
  Age: 44 Year
  Sex: Female

DRUGS (4)
  1. HYDROXYCHLOROQUINE SULFATE. [Suspect]
     Active Substance: HYDROXYCHLOROQUINE SULFATE
     Indication: RHEUMATOID ARTHRITIS
     Route: 065
  2. ACECLOFENAC [Suspect]
     Active Substance: ACECLOFENAC
     Route: 065
  3. PARACETAMOL [Concomitant]
     Active Substance: ACETAMINOPHEN
     Route: 065
  4. LEFLUNOMIDE. [Concomitant]
     Active Substance: LEFLUNOMIDE
     Route: 065

REACTIONS (9)
  - Oral mucosal blistering [Unknown]
  - Ocular toxicity [Unknown]
  - Petechiae [Unknown]
  - Bleeding time prolonged [Unknown]
  - Oral disorder [Unknown]
  - Angina bullosa haemorrhagica [Recovered/Resolved]
  - Red blood cell sedimentation rate increased [Unknown]
  - Haemoglobin decreased [Unknown]
  - Thrombocytopenia [Recovered/Resolved]
